FAERS Safety Report 21968225 (Version 3)
Quarter: 2023Q1

REPORT INFORMATION
  Report Type: Spontaneous
  Country: US (occurrence: US)
  Receive Date: 20230208
  Receipt Date: 20230220
  Transmission Date: 20230418
  Serious: Yes (Other)
  Sender: FDA-Public Use
  Company Number: US-PFIZER INC-PV202200119575

PATIENT
  Age: 63 Year
  Sex: Female
  Weight: 77.11 kg

DRUGS (13)
  1. XELJANZ [Suspect]
     Active Substance: TOFACITINIB CITRATE
     Indication: Colitis ulcerative
     Dosage: 10 MG, 2X/DAY
  2. XELJANZ [Suspect]
     Active Substance: TOFACITINIB CITRATE
     Dosage: 5 MG, 2X/DAY
     Route: 048
  3. XELJANZ [Suspect]
     Active Substance: TOFACITINIB CITRATE
     Dosage: 5 MG, DAILY
  4. ACYCLOVIR [Concomitant]
     Active Substance: ACYCLOVIR
     Dosage: UNK
  5. BETAMETHASONE DIPROPIONATE [Concomitant]
     Active Substance: BETAMETHASONE DIPROPIONATE
     Dosage: UNK
  6. ESTRACE [Concomitant]
     Active Substance: ESTRADIOL
     Dosage: UNK
  7. FLUAD QUAD [Concomitant]
     Indication: Immunisation
     Dosage: DOSE NUMBER UNKNOWN, SINGLE
  8. DIETARY SUPPLEMENT [Concomitant]
     Active Substance: DIETARY SUPPLEMENT
     Dosage: UNK
  9. ESTRADIOL [Concomitant]
     Active Substance: ESTRADIOL
     Dosage: UNK
  10. TOZINAMERAN [Concomitant]
     Active Substance: TOZINAMERAN
     Indication: COVID-19 immunisation
     Dosage: DOSE NUMBER UNKNOWN, SINGLE
  11. PROGESTERONE [Concomitant]
     Active Substance: PROGESTERONE
     Dosage: UNK
  12. SHINGRIX [Concomitant]
     Active Substance: RECOMBINANT VARICELLA ZOSTER VIRUS (VZV) GLYCOPROTEIN E
     Indication: Immunisation
     Dosage: DOSE NUMBER UNKNOWN, SINGLE
  13. TESTOSTERONE [Concomitant]
     Active Substance: TESTOSTERONE
     Dosage: UNK

REACTIONS (18)
  - Anal ulcer haemorrhage [Not Recovered/Not Resolved]
  - Renal impairment [Unknown]
  - Off label use [Not Recovered/Not Resolved]
  - Blood cholesterol increased [Unknown]
  - Constipation [Not Recovered/Not Resolved]
  - Mucous stools [Not Recovered/Not Resolved]
  - Pain [Not Recovered/Not Resolved]
  - Musculoskeletal stiffness [Not Recovered/Not Resolved]
  - Post-acute COVID-19 syndrome [Not Recovered/Not Resolved]
  - Muscle enzyme increased [Unknown]
  - Musculoskeletal stiffness [Unknown]
  - Arthralgia [Unknown]
  - Pain in extremity [Unknown]
  - Arthralgia [Unknown]
  - Arthralgia [Unknown]
  - Musculoskeletal stiffness [Unknown]
  - Myalgia [Unknown]
  - COVID-19 [Unknown]

NARRATIVE: CASE EVENT DATE: 20221201
